FAERS Safety Report 14404880 (Version 1)
Quarter: 2018Q1

REPORT INFORMATION
  Report Type: Spontaneous
  Country: US (occurrence: US)
  Receive Date: 20180118
  Receipt Date: 20180118
  Transmission Date: 20180509
  Serious: Yes (Death)
  Sender: FDA-Public Use
  Company Number: US-CIPLA LTD.-2018US00915

PATIENT

DRUGS (8)
  1. CARBOPLATIN. [Suspect]
     Active Substance: CARBOPLATIN
     Indication: HORMONE-REFRACTORY PROSTATE CANCER
     Dosage: UNK
  2. DOCETAXEL. [Suspect]
     Active Substance: DOCETAXEL
     Indication: HORMONE-REFRACTORY PROSTATE CANCER
     Dosage: UNK
  3. CYCLOPHOSPHAMIDE. [Suspect]
     Active Substance: CYCLOPHOSPHAMIDE
     Indication: HORMONE-REFRACTORY PROSTATE CANCER
     Dosage: UNK
  4. DASATINIB. [Suspect]
     Active Substance: DASATINIB
     Indication: HORMONE-REFRACTORY PROSTATE CANCER
     Dosage: UNK
  5. KETOCONAZOLE. [Suspect]
     Active Substance: KETOCONAZOLE
     Indication: HORMONE-REFRACTORY PROSTATE CANCER
     Dosage: UNK
  6. ENZALUTAMIDE [Suspect]
     Active Substance: ENZALUTAMIDE
     Indication: HORMONE-REFRACTORY PROSTATE CANCER
     Dosage: UNK
  7. ABIRATERONE ACETATE. [Suspect]
     Active Substance: ABIRATERONE ACETATE
     Indication: HORMONE-REFRACTORY PROSTATE CANCER
     Dosage: UNK
  8. CABAZITAXEL [Suspect]
     Active Substance: CABAZITAXEL
     Indication: HORMONE-REFRACTORY PROSTATE CANCER
     Dosage: UNK

REACTIONS (1)
  - Prostate cancer [Fatal]
